FAERS Safety Report 5404348-3 (Version None)
Quarter: 2007Q3

REPORT INFORMATION
  Report Type: 
  Country: None (occurrence: None)
  Receive Date: 20070802
  Receipt Date: 20070725
  Transmission Date: 20080115
  Serious: Yes (Hospitalization)
  Sender: FDA-Public Use
  Company Number: US-PFIZER INC-2005121487

PATIENT
  Sex: Female
  Weight: 78.2 kg

DRUGS (16)
  1. SUTENT [Suspect]
     Indication: METASTATIC RENAL CELL CARCINOMA
     Route: 048
     Dates: start: 20050607
  2. METFORMIN HCL [Concomitant]
     Indication: DIABETES MELLITUS
     Route: 048
  3. LIPITOR [Concomitant]
     Indication: HYPERCHOLESTEROLAEMIA
     Route: 048
  4. FOLIC ACID [Concomitant]
     Indication: MEDICAL DIET
     Route: 048
  5. TRICOR [Concomitant]
     Indication: HYPERCHOLESTEROLAEMIA
     Route: 048
  6. TYLENOL (CAPLET) [Concomitant]
     Indication: PAIN IN EXTREMITY
     Route: 048
  7. PREVACID [Concomitant]
     Indication: GASTROOESOPHAGEAL REFLUX DISEASE
     Route: 048
  8. ESTRACE [Concomitant]
     Indication: HORMONE REPLACEMENT THERAPY
     Route: 061
  9. COZAAR [Concomitant]
     Indication: HYPERTENSION
     Route: 048
  10. CENTRUM SILVER [Concomitant]
     Indication: VITAMIN SUPPLEMENTATION
     Route: 048
  11. FISH OIL [Concomitant]
     Indication: MEDICAL DIET
     Route: 048
  12. XANAX [Concomitant]
     Indication: ANXIETY
     Route: 048
  13. COMPAZINE [Concomitant]
     Indication: NAUSEA
     Route: 048
  14. LOPERAMIDE HCL [Concomitant]
     Indication: DIARRHOEA
     Route: 048
  15. CARAFATE [Concomitant]
     Indication: GASTROOESOPHAGEAL REFLUX DISEASE
     Route: 048
  16. TRIPLE ANTIBIOTIC OINTMENT [Concomitant]
     Indication: BLISTER
     Route: 061

REACTIONS (1)
  - DIABETIC FOOT [None]
